FAERS Safety Report 14820367 (Version 4)
Quarter: 2018Q4

REPORT INFORMATION
  Report Type: Spontaneous
  Country: US (occurrence: US)
  Receive Date: 20180427
  Receipt Date: 20181019
  Transmission Date: 20190204
  Serious: Yes (Death, Congenital Anomaly, Other)
  Sender: FDA-Public Use
  Company Number: PHEH2018US016019

PATIENT
  Sex: Female

DRUGS (1)
  1. ZOFRAN [Suspect]
     Active Substance: ONDANSETRON HYDROCHLORIDE
     Indication: FOETAL EXPOSURE DURING PREGNANCY
     Dosage: MOTHER DOSE: 4 MG, Q6H
     Route: 064

REACTIONS (12)
  - Heart disease congenital [Fatal]
  - Trisomy 18 [Unknown]
  - Atrial septal defect [Fatal]
  - Premature baby [Unknown]
  - Ventricular septal defect [Unknown]
  - Foetal exposure during pregnancy [Unknown]
  - Asthma [Unknown]
  - Double outlet right ventricle [Fatal]
  - Congenital choroid plexus cyst [Unknown]
  - Exomphalos [Unknown]
  - Ventricular hypoplasia [Unknown]
  - Micrognathia [Unknown]
